FAERS Safety Report 13672958 (Version 1)
Quarter: 2017Q2

REPORT INFORMATION
  Report Type: Spontaneous
  Country: US (occurrence: US)
  Receive Date: 20170621
  Receipt Date: 20170621
  Transmission Date: 20170830
  Serious: Yes (Other)
  Sender: FDA-Public Use
  Company Number: US-PFIZER INC-2017268345

PATIENT
  Age: 58 Year
  Sex: Female
  Weight: 68 kg

DRUGS (3)
  1. CHANTIX [Suspect]
     Active Substance: VARENICLINE TARTRATE
     Indication: SMOKING CESSATION THERAPY
     Dosage: 1 MG, 2X/DAY (ONE IN THE MORNING AND ONE IN THE EVENING)
     Route: 048
  2. MEXILETINE [Concomitant]
     Active Substance: MEXILETINE
     Indication: HEART RATE IRREGULAR
     Dosage: 150 MG, 3X/DAY
  3. FLUTICASONE. [Concomitant]
     Active Substance: FLUTICASONE
     Dosage: 50 UG, 1X/DAY (IN EACH SIDE OF NOSE)
     Route: 045

REACTIONS (5)
  - Stomatitis [Unknown]
  - Lip exfoliation [Unknown]
  - Pharyngitis streptococcal [Unknown]
  - Malaise [Unknown]
  - Cheilitis [Unknown]
